FAERS Safety Report 7367852-7 (Version None)
Quarter: 2011Q1

REPORT INFORMATION
  Report Type: 
  Country: None (occurrence: None)
  Receive Date: 20110322
  Receipt Date: 20110311
  Transmission Date: 20110831
  Serious: Yes (Life-Threatening, Hospitalization)
  Sender: FDA-Public Use
  Company Number: US-GILEAD-2010-0034271

PATIENT
  Sex: Male

DRUGS (4)
  1. TRUVADA [Suspect]
     Indication: HIV INFECTION
     Dates: start: 20091015
  2. TYLENOL EXTRA STRENGTH [Concomitant]
     Indication: NASOPHARYNGITIS
     Dates: start: 20101203
  3. RITONAVIR [Suspect]
     Indication: HIV INFECTION
  4. ATAZANAVIR SULFATE [Suspect]
     Indication: HIV INFECTION

REACTIONS (1)
  - NON-CARDIAC CHEST PAIN [None]
